FAERS Safety Report 7764794-X (Version None)
Quarter: 2011Q3

REPORT INFORMATION
  Report Type: 
  Country: None (occurrence: None)
  Receive Date: 20110921
  Receipt Date: 20110921
  Transmission Date: 20111222
  Serious: Yes (Other)
  Sender: FDA-Public Use
  Company Number: None

PATIENT
  Age: 52 Year
  Sex: Female
  Weight: 90.718 kg

DRUGS (1)
  1. SIMVASTATIN [Suspect]
     Indication: BLOOD CHOLESTEROL ABNORMAL
     Dosage: 20 MG
     Route: 048
     Dates: start: 20100921, end: 20110805

REACTIONS (7)
  - ABASIA [None]
  - MOVEMENT DISORDER [None]
  - SUICIDAL IDEATION [None]
  - MUSCLE SPASMS [None]
  - ARTHROPATHY [None]
  - DEPRESSION [None]
  - LISTLESS [None]
